FAERS Safety Report 6412556-8 (Version None)
Quarter: 2009Q4

REPORT INFORMATION
  Report Type: 
  Country: None (occurrence: None)
  Receive Date: 20091023
  Receipt Date: 20091019
  Transmission Date: 20100525
  Serious: Yes (Death, Life-Threatening, Hospitalization, Other)
  Sender: FDA-Public Use
  Company Number: IT-ELI_LILLY_AND_COMPANY-IT200909001315

PATIENT
  Sex: Female
  Weight: 78 kg

DRUGS (8)
  1. PEMETREXED [Suspect]
     Indication: HEAD AND NECK CANCER
     Dosage: 500 MG/M2, ON D1 EVERY 21 DAY
     Route: 065
     Dates: start: 20090702
  2. CISPLATIN [Suspect]
     Indication: HEAD AND NECK CANCER
     Dosage: 75 MG/M2, ON D1 EVERY 21 DAYS
     Route: 065
     Dates: start: 20090702
  3. FOLIC ACID [Concomitant]
     Indication: PROPHYLAXIS
     Dosage: 1 D/F, DAILY (1/D)
     Dates: start: 20090625, end: 20090811
  4. VIT B12 [Concomitant]
     Indication: PROPHYLAXIS
     Dosage: 1 MG, DAILY (1/D)
     Dates: start: 20090625, end: 20090811
  5. DEXAMETHASONE [Concomitant]
     Indication: PROPHYLAXIS
     Dosage: 8 MG, AS NEEDED
     Dates: start: 20090701, end: 20090811
  6. RAMIPRIL [Concomitant]
     Indication: HYPERTENSION
     Dosage: 2.5 MG, 2/D
     Dates: start: 20071205
  7. LORAZEPAM [Concomitant]
     Indication: DEPRESSION
     Dosage: 1 MG, AS NEEDED
     Dates: start: 20090705
  8. BENEXOL [Concomitant]
     Indication: SUPPORTIVE CARE
     Dosage: 1 D/F, DAILY (1/D)
     Dates: start: 20071205

REACTIONS (7)
  - ATRIAL FIBRILLATION [None]
  - HYPOKALAEMIA [None]
  - HYPONATRAEMIA [None]
  - LEUKOPENIA [None]
  - RESPIRATORY FAILURE [None]
  - STAPHYLOCOCCAL INFECTION [None]
  - VENOUS THROMBOSIS [None]
